FAERS Safety Report 6345597-X (Version None)
Quarter: 2009Q3

REPORT INFORMATION
  Report Type: 
  Country: None (occurrence: None)
  Receive Date: 20090821
  Receipt Date: 20090821
  Transmission Date: 20100115
  Serious: No
  Sender: FDA-Public Use
  Company Number: 8046591

PATIENT
  Age: 48 Year
  Sex: Female

DRUGS (1)
  1. CIMZIA [Suspect]
     Dosage: 400 MG
     Dates: start: 20090507, end: 20090601

REACTIONS (2)
  - BODY TEMPERATURE INCREASED [None]
  - UPPER RESPIRATORY TRACT INFECTION [None]
